FAERS Safety Report 23378001 (Version 1)
Quarter: 2024Q1

REPORT INFORMATION
  Report Type: Spontaneous
  Country: FR (occurrence: FR)
  Receive Date: 20240108
  Receipt Date: 20240108
  Transmission Date: 20240410
  Serious: Yes (Other)
  Sender: FDA-Public Use
  Company Number: FR-JNJFOC-20240111059

PATIENT
  Sex: Male

DRUGS (2)
  1. HALOPERIDOL [Suspect]
     Active Substance: HALOPERIDOL
     Indication: Product used for unknown indication
     Route: 048
     Dates: start: 20231129, end: 20231130
  2. CANNABIS SATIVA SUBSP. INDICA TOP [Suspect]
     Active Substance: CANNABIS SATIVA SUBSP. INDICA TOP
     Indication: Product used for unknown indication

REACTIONS (6)
  - Drug use disorder [Unknown]
  - Drug abuse [Unknown]
  - Speech disorder [Unknown]
  - Dyskinesia [Unknown]
  - Hypertonia [Unknown]
  - Tremor [Unknown]

NARRATIVE: CASE EVENT DATE: 20231129
